FAERS Safety Report 4937043-5 (Version None)
Quarter: 2006Q1

REPORT INFORMATION
  Report Type: 
  Country: None (occurrence: None)
  Receive Date: 20060309
  Receipt Date: 20060228
  Transmission Date: 20060701
  Serious: Yes (Hospitalization)
  Sender: FDA-Public Use
  Company Number: JP-JNJFOC-20060300663

PATIENT
  Sex: Male
  Weight: 57 kg

DRUGS (16)
  1. REMICADE [Suspect]
     Route: 042
  2. REMICADE [Suspect]
     Route: 042
  3. REMICADE [Suspect]
     Route: 042
  4. REMICADE [Suspect]
     Route: 042
  5. REMICADE [Suspect]
     Route: 042
  6. REMICADE [Suspect]
     Route: 042
  7. REMICADE [Suspect]
     Route: 042
  8. REMICADE [Suspect]
     Route: 042
  9. REMICADE [Suspect]
     Indication: RHEUMATOID ARTHRITIS
     Route: 042
  10. RHEUMATREX [Suspect]
     Indication: RHEUMATOID ARTHRITIS
     Route: 048
  11. ARAVA [Concomitant]
     Indication: RHEUMATOID ARTHRITIS
     Route: 048
  12. PREDONINE [Concomitant]
     Indication: RHEUMATOID ARTHRITIS
     Route: 048
  13. MOBIC [Concomitant]
     Indication: RHEUMATOID ARTHRITIS
     Route: 048
  14. MUCOSTA [Concomitant]
     Route: 048
  15. NORVASC [Concomitant]
     Route: 048
  16. ADRENAL HORMONE PREPARATIONS [Concomitant]
     Indication: RHEUMATOID ARTHRITIS

REACTIONS (3)
  - ALANINE AMINOTRANSFERASE INCREASED [None]
  - DEMENTIA [None]
  - PYREXIA [None]
